FAERS Safety Report 21218115 (Version 1)
Quarter: 2022Q3

REPORT INFORMATION
  Report Type: Spontaneous
  Country: FR (occurrence: FR)
  Receive Date: 20220816
  Receipt Date: 20220816
  Transmission Date: 20221027
  Serious: Yes (Hospitalization)
  Sender: FDA-Public Use
  Company Number: None

PATIENT
  Age: 71 Year
  Sex: Female

DRUGS (5)
  1. LORAZEPAM [Suspect]
     Active Substance: LORAZEPAM
     Indication: Arthralgia
     Dosage: 1MG MORNING, NOON AND EVENING, Q6H
     Route: 048
     Dates: start: 20020610, end: 20220624
  2. ZOPICLONE [Suspect]
     Active Substance: ZOPICLONE
     Indication: Arthralgia
     Dosage: 7.5 MILLIGRAM, QD
     Route: 048
     Dates: start: 20020610, end: 20220624
  3. PREGABALIN [Suspect]
     Active Substance: PREGABALIN
     Indication: Arthralgia
     Dosage: MORNING AND EVENING, 100 MILLIGRAM, Q12H
     Route: 048
     Dates: end: 20220624
  4. TRAMADOL [Suspect]
     Active Substance: TRAMADOL
     Indication: Arthralgia
     Dosage: MORNING AND EVENING, 150 MILLIGRAM, Q12H
     Route: 048
     Dates: start: 20020610, end: 20220624
  5. AMITRIPTYLINE HYDROCHLORIDE [Suspect]
     Active Substance: AMITRIPTYLINE HYDROCHLORIDE
     Indication: Arthralgia
     Dosage: 15 DROPS, I.E.15MG, 15 MILLIGRAM, QD
     Route: 048
     Dates: start: 20020610, end: 20220624

REACTIONS (1)
  - Confusional state [Recovered/Resolved]

NARRATIVE: CASE EVENT DATE: 20220624
